FAERS Safety Report 7229064 (Version 3)
Quarter: 2014Q1

REPORT INFORMATION
  Report Type: Spontaneous
  Country: US (occurrence: US)
  Receive Date: 20091223
  Receipt Date: 20140128
  Transmission Date: 20141002
  Serious: Yes (Other)
  Sender: FDA-Public Use
  Company Number: US-JNJFOC-20091205206

PATIENT
  Age: 55 Year
  Sex: Male
  Weight: 90.72 kg

DRUGS (12)
  1. DURAGESIC [Suspect]
     Indication: BACK PAIN
     Route: 062
     Dates: start: 20091117, end: 20091121
  2. DURAGESIC [Suspect]
     Indication: BACK PAIN
     Route: 062
     Dates: start: 20091117
  3. DURAGESIC [Suspect]
     Indication: BACK PAIN
     Route: 062
     Dates: start: 2004, end: 20091117
  4. DILAUDID [Concomitant]
     Indication: PAIN
     Dosage: HALF TABLET OF 8.0 MG PER ORAL TWICE A DAY (BID)
     Route: 048
  5. DILAUDID [Concomitant]
     Indication: BREAKTHROUGH PAIN
     Dosage: HALF TABLET OF 8.0 MG PER ORAL TWICE A DAY (BID)
     Route: 048
  6. LYRICA [Concomitant]
     Indication: PAIN
     Route: 048
  7. CYMBALTA [Concomitant]
     Indication: ANXIETY
     Route: 048
  8. CYMBALTA [Concomitant]
     Indication: PAIN
     Route: 048
  9. LORAZEPAM [Concomitant]
     Indication: ANXIETY
     Route: 048
  10. LORAZEPAM [Concomitant]
     Indication: INSOMNIA
     Route: 048
  11. AMBIEN [Concomitant]
     Indication: INSOMNIA
     Dosage: ONE EVERY NIGHT
     Route: 048
  12. METOCLOPRAMIDE [Concomitant]
     Indication: GASTROOESOPHAGEAL REFLUX DISEASE
     Route: 048

REACTIONS (5)
  - Sedation [Recovered/Resolved]
  - Neuralgia [Not Recovered/Not Resolved]
  - Dyspnoea [Recovered/Resolved]
  - Incorrect drug administration rate [Recovered/Resolved]
  - Product quality issue [Unknown]
